FAERS Safety Report 13702751 (Version 1)
Quarter: 2017Q2

REPORT INFORMATION
  Report Type: Spontaneous
  Country: US (occurrence: US)
  Receive Date: 20170629
  Receipt Date: 20170629
  Transmission Date: 20170830
  Serious: Yes (Other)
  Sender: FDA-Public Use
  Company Number: US-JNJFOC-20170604520

PATIENT
  Age: 63 Year
  Sex: Male

DRUGS (21)
  1. GABAPENTINE [Concomitant]
     Active Substance: GABAPENTIN
     Route: 048
     Dates: start: 20170504
  2. BLINATUMOMAB [Concomitant]
     Active Substance: BLINATUMOMAB
     Route: 065
     Dates: start: 201705
  3. INSULIN LISPRO [Concomitant]
     Active Substance: INSULIN LISPRO
     Route: 058
     Dates: start: 20170512
  4. ALLOPURINOL. [Concomitant]
     Active Substance: ALLOPURINOL
     Route: 048
     Dates: start: 20170503
  5. MICAFUNGIN [Concomitant]
     Active Substance: MICAFUNGIN
     Route: 042
     Dates: start: 20170503
  6. PRAVASTATIN. [Concomitant]
     Active Substance: PRAVASTATIN
     Dosage: NOT ABLE TO SWALLOW PILL
     Route: 048
     Dates: start: 20170503
  7. POTASSIUM CHLORIDE. [Concomitant]
     Active Substance: POTASSIUM CHLORIDE
     Dosage: IF PHOSPHATE LESS THAN 2 MG/DL
     Route: 042
     Dates: start: 20170514
  8. MORPHINE [Concomitant]
     Active Substance: MORPHINE
     Indication: PAIN
     Route: 065
     Dates: start: 201705
  9. HALDOL [Suspect]
     Active Substance: HALOPERIDOL
     Indication: AGITATION
     Route: 042
     Dates: start: 201705, end: 2017
  10. BENADRYL [Suspect]
     Active Substance: DIPHENHYDRAMINE HYDROCHLORIDE
     Indication: AGITATION
     Dosage: GIVEN OVERNIGHT
     Route: 065
     Dates: start: 201705
  11. LIDOCAINE. [Concomitant]
     Active Substance: LIDOCAINE
     Dosage: APPLIED AT BACK-LEFT UPPER
     Route: 061
     Dates: start: 20170512
  12. MEROPENEM. [Concomitant]
     Active Substance: MEROPENEM
     Route: 042
     Dates: start: 20170504
  13. CHLORPROMAZINE. [Concomitant]
     Active Substance: CHLORPROMAZINE
     Route: 042
     Dates: start: 20170513
  14. DILAUDID [Concomitant]
     Active Substance: HYDROMORPHONE HYDROCHLORIDE
     Indication: BREAKTHROUGH PAIN
     Dosage: IF PHOSPHATE LESS THAN 2 MG/DL
     Route: 042
     Dates: start: 20170512
  15. ATIVAN [Suspect]
     Active Substance: LORAZEPAM
     Indication: PRODUCT USED FOR UNKNOWN INDICATION
     Route: 065
     Dates: start: 201705, end: 2017
  16. DECADRON [Suspect]
     Active Substance: DEXAMETHASONE
     Indication: PRODUCT USED FOR UNKNOWN INDICATION
     Dosage: IF PHOSPHATE LESS THAN 2 MG/DL
     Route: 065
     Dates: start: 201705
  17. NICOTINE. [Concomitant]
     Active Substance: NICOTINE
     Dosage: ARM-RIGHT UPPER
     Route: 061
     Dates: start: 20170511
  18. ATOVAQUONE. [Concomitant]
     Active Substance: ATOVAQUONE
     Route: 048
     Dates: start: 20170503
  19. FAMOTIDINE. [Concomitant]
     Active Substance: FAMOTIDINE
     Route: 042
     Dates: start: 20170503
  20. SODIUM PHOSPHATE [Concomitant]
     Active Substance: SODIUM PHOSPHATE
     Dosage: IF PHOSPHATE LESS THAN 2 MG/DL
     Route: 042
     Dates: start: 20170515
  21. ACYCLOVIR. [Concomitant]
     Active Substance: ACYCLOVIR
     Route: 042
     Dates: start: 20170512

REACTIONS (4)
  - Electrocardiogram QT prolonged [Unknown]
  - Product use issue [Unknown]
  - Drug ineffective [Unknown]
  - Off label use [Unknown]

NARRATIVE: CASE EVENT DATE: 201705
